FAERS Safety Report 10253318 (Version 1)
Quarter: 2014Q2

REPORT INFORMATION
  Report Type: Spontaneous
  Country: US (occurrence: US)
  Receive Date: 20140623
  Receipt Date: 20140623
  Transmission Date: 20141212
  Serious: No
  Sender: FDA-Public Use
  Company Number: US-SHIONOGI, INC-2014000298

PATIENT
  Sex: 0

DRUGS (6)
  1. OSPHENA [Suspect]
     Indication: VULVOVAGINAL DRYNESS
  2. OSPHENA [Suspect]
     Indication: DYSPAREUNIA
  3. ESTROGEN [Suspect]
     Indication: PRODUCT USED FOR UNKNOWN INDICATION
     Dosage: UNK
     Route: 061
  4. SINGULAIR [Concomitant]
     Indication: PRODUCT USED FOR UNKNOWN INDICATION
     Dosage: UNK
     Route: 065
  5. ATENOLOL [Concomitant]
     Indication: PRODUCT USED FOR UNKNOWN INDICATION
     Dosage: 50 MG, UNK
     Route: 065
  6. ZOMIG [Concomitant]
     Indication: MIGRAINE
     Dosage: UNK
     Route: 065

REACTIONS (2)
  - Headache [Not Recovered/Not Resolved]
  - Labelled drug-drug interaction medication error [Unknown]
